FAERS Safety Report 11133064 (Version 1)
Quarter: 2015Q2

REPORT INFORMATION
  Report Type: Spontaneous
  Country: US (occurrence: US)
  Receive Date: 20150522
  Receipt Date: 20150522
  Transmission Date: 20150821
  Serious: No
  Sender: FDA-Public Use
  Company Number: US-MALLINCKRODT-QSC-2014-0434

PATIENT
  Sex: Male

DRUGS (2)
  1. H.P. ACTHAR [Suspect]
     Active Substance: CORTICOTROPIN
     Dosage: 80 UNITS, BIW
     Route: 030
     Dates: start: 20140707
  2. H.P. ACTHAR [Suspect]
     Active Substance: CORTICOTROPIN
     Indication: GLOMERULONEPHRITIS
     Dosage: 80 UNITS, BIW
     Route: 030
     Dates: start: 20120501, end: 20130730

REACTIONS (4)
  - Blood glucose increased [Recovering/Resolving]
  - Melanocytic naevus [Recovering/Resolving]
  - Skin cancer [Recovering/Resolving]
  - Blood pressure increased [Recovering/Resolving]
